FAERS Safety Report 7371242-0 (Version None)
Quarter: 2011Q1

REPORT INFORMATION
  Report Type: 
  Country: None (occurrence: None)
  Receive Date: 20110324
  Receipt Date: 20110316
  Transmission Date: 20110831
  Serious: Yes (Hospitalization, Other)
  Sender: FDA-Public Use
  Company Number: AR-AMGEN-ARGSP2011009423

PATIENT
  Age: 50 Year
  Sex: Female
  Weight: 75 kg

DRUGS (2)
  1. CORTICOSTEROIDS [Concomitant]
     Dosage: UNK
     Dates: start: 20100101
  2. ENBREL [Suspect]
     Indication: RHEUMATOID ARTHRITIS
     Dosage: 50 MG, WEEKLY
     Route: 058
     Dates: start: 20100101, end: 20110101

REACTIONS (7)
  - ESCHERICHIA INFECTION [None]
  - HYPERSENSITIVITY [None]
  - DRUG INEFFECTIVE [None]
  - COUGH [None]
  - INFLUENZA [None]
  - ARTHRITIS INFECTIVE [None]
  - OEDEMA PERIPHERAL [None]
